FAERS Safety Report 4765922-0 (Version None)
Quarter: 2005Q3

REPORT INFORMATION
  Report Type: 
  Country: None (occurrence: None)
  Receive Date: 20050906
  Receipt Date: 20050825
  Transmission Date: 20060218
  Serious: Yes (Other)
  Sender: FDA-Public Use
  Company Number: 2005-08-1738

PATIENT
  Age: 34 Year
  Sex: Female
  Weight: 44 kg

DRUGS (7)
  1. PEG-INTRON [Suspect]
     Indication: HEPATITIS C
     Dosage: 80 MCG QWK SUBCUTANEOUS
     Route: 058
     Dates: start: 20050623, end: 20050818
  2. REBETOL [Suspect]
     Indication: HEPATITIS C
     Dosage: 200 MG BID ORAL
     Route: 048
     Dates: start: 20050623, end: 20050818
  3. NEUROCIL TABLETS [Concomitant]
  4. OXAZEPAM [Concomitant]
  5. LORAZEPAM [Concomitant]
  6. CHLORALDURAT CAPSULES [Concomitant]
  7. TIMONIL - SLOW RELEASE TABLETS [Concomitant]

REACTIONS (2)
  - DRUG INTERACTION [None]
  - HALLUCINATION [None]
